FAERS Safety Report 20207829 (Version 1)
Quarter: 2021Q4

REPORT INFORMATION
  Report Type: Spontaneous
  Country: AU (occurrence: AU)
  Receive Date: 20211220
  Receipt Date: 20211220
  Transmission Date: 20220303
  Serious: Yes (Hospitalization)
  Sender: FDA-Public Use
  Company Number: AU-TASMAN PHARMA, INC.-2021TSM00354

PATIENT
  Sex: Male

DRUGS (7)
  1. CLOZAPINE [Suspect]
     Active Substance: CLOZAPINE
     Dosage: 800 MG
     Dates: start: 20210401, end: 20210622
  2. CLOZAPINE [Suspect]
     Active Substance: CLOZAPINE
     Dosage: 800 MG
     Dates: start: 20210623, end: 20210810
  3. CLOZAPINE [Suspect]
     Active Substance: CLOZAPINE
     Dosage: 475 MG
     Dates: start: 20210827, end: 20210830
  4. CLOZAPINE [Suspect]
     Active Substance: CLOZAPINE
     Dosage: 750 MG
     Dates: start: 20210916, end: 20211203
  5. CLOZAPINE [Suspect]
     Active Substance: CLOZAPINE
     Dosage: 100 MG
     Dates: start: 20210814, end: 20210826
  6. CLOZAPINE [Suspect]
     Active Substance: CLOZAPINE
     Dosage: 750 MG
     Dates: start: 20210831, end: 20210915
  7. CLOZAPINE [Suspect]
     Active Substance: CLOZAPINE
     Dosage: 12.5 MG
     Dates: start: 20211208

REACTIONS (2)
  - Hospitalisation [Recovered/Resolved]
  - Treatment noncompliance [Recovered/Resolved]

NARRATIVE: CASE EVENT DATE: 20210810
